FAERS Safety Report 10203034 (Version 2)
Quarter: 2014Q2

REPORT INFORMATION
  Report Type: Report from Study
  Country: US (occurrence: US)
  Receive Date: 20140529
  Receipt Date: 20140529
  Transmission Date: 20141212
  Serious: Yes (Hospitalization, Other)
  Sender: FDA-Public Use
  Company Number: US-MYLANLABS-2014S1011824

PATIENT
  Age: 2 Decade
  Sex: Female

DRUGS (4)
  1. AMNESTEEM CAPSULES [Suspect]
     Indication: ACNE
     Route: 048
     Dates: start: 201401, end: 20140418
  2. TRIAMCINOLONE [Concomitant]
  3. HYDROXYZINE [Concomitant]
  4. ALLERGY SHOTS [Concomitant]

REACTIONS (2)
  - Hypersensitivity [Recovered/Resolved]
  - Burning sensation [Recovered/Resolved]
